FAERS Safety Report 8495037-X (Version None)
Quarter: 2012Q2

REPORT INFORMATION
  Report Type: 
  Country: None (occurrence: None)
  Receive Date: 20120627
  Receipt Date: 20120618
  Transmission Date: 20120825
  Serious: Yes (Hospitalization)
  Sender: FDA-Public Use
  Company Number: 2012SP033769

PATIENT
  Age: 27 Year
  Sex: Female
  Weight: 43.0917 kg

DRUGS (1)
  1. IMPLANON [Suspect]
     Indication: CONTRACEPTION
     Dates: start: 20110214, end: 20120513

REACTIONS (5)
  - CONTUSION [None]
  - WEIGHT DECREASED [None]
  - CLONUS [None]
  - HAEMORRHAGE [None]
  - ALOPECIA [None]
